FAERS Safety Report 9748784 (Version 3)
Quarter: 2014Q3

REPORT INFORMATION
  Report Type: Report from Study
  Country: AR (occurrence: AR)
  Receive Date: 20131212
  Receipt Date: 20140903
  Transmission Date: 20150326
  Serious: Yes (Hospitalization, Other)
  Sender: FDA-Public Use
  Company Number: AR-US-EMD SERONO, INC.-7256172

PATIENT
  Sex: Female

DRUGS (1)
  1. SAIZEN [Suspect]
     Active Substance: SOMATROPIN
     Indication: GROWTH HORMONE DEFICIENCY
     Dates: start: 20061123

REACTIONS (5)
  - Aortitis [Unknown]
  - Migraine [Not Recovered/Not Resolved]
  - Central nervous system lesion [Unknown]
  - Headache [Not Recovered/Not Resolved]
  - Blindness [Unknown]
